FAERS Safety Report 9714428 (Version 2)
Quarter: 2013Q4

REPORT INFORMATION
  Report Type: Spontaneous
  Country: PE (occurrence: PE)
  Receive Date: 20131126
  Receipt Date: 20131220
  Transmission Date: 20140711
  Serious: Yes (Death, Other)
  Sender: FDA-Public Use
  Company Number: PE-PFIZER INC-2013337367

PATIENT
  Age: 60 Year
  Sex: Male

DRUGS (3)
  1. LYRICA [Suspect]
     Indication: NEURALGIA
     Dosage: 75 MG, 1X/DAY
     Route: 048
     Dates: start: 2011
  2. GLIDIABET [Concomitant]
     Dosage: UNK
     Route: 048
  3. TAMSULOSIN [Concomitant]
     Dosage: UNK
     Route: 048

REACTIONS (2)
  - Metastasis [Fatal]
  - Lung neoplasm malignant [Unknown]
